FAERS Safety Report 5575915-1 (Version None)
Quarter: 2007Q4

REPORT INFORMATION
  Report Type: 
  Country: None (occurrence: None)
  Receive Date: 20071221
  Receipt Date: 20071205
  Transmission Date: 20080405
  Serious: Yes (Other)
  Sender: FDA-Public Use
  Company Number: 000#8#2007-00342

PATIENT
  Age: 54 Year
  Sex: Male

DRUGS (3)
  1. ISOSORBIDE MONONITRATE [Suspect]
     Indication: ARTERIOSPASM CORONARY
     Dosage: 120 MG
  2. DILTIAZEM [Suspect]
     Indication: ARTERIOSPASM CORONARY
     Dosage: 360 MG
  3. LEVOTHYROXINE SODIUM [Concomitant]

REACTIONS (5)
  - ARTERIOSPASM CORONARY [None]
  - BRADYCARDIA [None]
  - CHEST PAIN [None]
  - CIRCULATORY COLLAPSE [None]
  - DRUG INEFFECTIVE [None]
